FAERS Safety Report 21432381 (Version 1)
Quarter: 2022Q4

REPORT INFORMATION
  Report Type: Spontaneous
  Country: US (occurrence: US)
  Receive Date: 20221009
  Receipt Date: 20221009
  Transmission Date: 20230113
  Serious: Yes (Other)
  Sender: FDA-Public Use
  Company Number: US-GLAXOSMITHKLINE-US2022AMR142073

PATIENT
  Sex: Female
  Weight: 97.506 kg

DRUGS (2)
  1. ZEJULA [Suspect]
     Active Substance: NIRAPARIB
     Indication: Ovarian cancer
     Dosage: 300 MG, QD
     Route: 048
     Dates: start: 20220908
  2. ZEJULA [Suspect]
     Active Substance: NIRAPARIB
     Dosage: UNK, Z (REDUCED DOSE)

REACTIONS (1)
  - Thrombocytopenia [Unknown]
